FAERS Safety Report 18497235 (Version 1)
Quarter: 2020Q4

REPORT INFORMATION
  Report Type: Spontaneous
  Country: US (occurrence: US)
  Receive Date: 20201112
  Receipt Date: 20201112
  Transmission Date: 20210114
  Serious: No
  Sender: FDA-Public Use
  Company Number: US-BIOVITRUM-2020US6107

PATIENT
  Age: 2 Month
  Sex: Female
  Weight: 12.7 kg

DRUGS (7)
  1. ZYRTEC [Concomitant]
     Active Substance: CETIRIZINE HYDROCHLORIDE
  2. SYNAGIS [Suspect]
     Active Substance: PALIVIZUMAB
     Indication: PREMATURE BABY
     Route: 030
     Dates: start: 20190320
  3. SYNAGIS [Suspect]
     Active Substance: PALIVIZUMAB
     Indication: CYSTIC FIBROSIS
  4. SYNAGIS [Suspect]
     Active Substance: PALIVIZUMAB
     Indication: RADICULOPATHY
  5. MVW COMPLETE FORMLTN PEDIATRIC [Concomitant]
  6. ALBUTEROL SULFATE. [Concomitant]
     Active Substance: ALBUTEROL SULFATE
  7. CREON 12K-38K-60 CAPSULE DR [Concomitant]

REACTIONS (2)
  - Weight decreased [Not Recovered/Not Resolved]
  - Off label use [Unknown]

NARRATIVE: CASE EVENT DATE: 20190320
